FAERS Safety Report 13523922 (Version 1)
Quarter: 2017Q2

REPORT INFORMATION
  Report Type: Spontaneous
  Country: US (occurrence: US)
  Receive Date: 20170508
  Receipt Date: 20170508
  Transmission Date: 20170830
  Serious: No
  Sender: FDA-Public Use
  Company Number: US-VIFOR (INTERNATIONAL) INC.-VIT-2017-02498

PATIENT
  Age: 78 Year
  Sex: Female

DRUGS (16)
  1. WARFARIN [Concomitant]
     Active Substance: WARFARIN
  2. IRON [Concomitant]
     Active Substance: IRON
  3. PROTONEX [Concomitant]
  4. DOK [Concomitant]
     Active Substance: DOCUSATE SODIUM
  5. LISINOPRIL. [Concomitant]
     Active Substance: LISINOPRIL
  6. TOPROL XL [Concomitant]
     Active Substance: METOPROLOL SUCCINATE
  7. NORCO [Concomitant]
     Active Substance: ACETAMINOPHEN\HYDROCODONE BITARTRATE
  8. BACTRIM [Concomitant]
     Active Substance: SULFAMETHOXAZOLE\TRIMETHOPRIM
  9. POTASSIUM [Concomitant]
     Active Substance: POTASSIUM
  10. LYRICA [Concomitant]
     Active Substance: PREGABALIN
  11. ZANAFLEX [Concomitant]
     Active Substance: TIZANIDINE HYDROCHLORIDE
  12. VELTASSA [Suspect]
     Active Substance: PATIROMER
     Indication: HYPERKALAEMIA
     Route: 048
  13. ZOLOFT [Concomitant]
     Active Substance: SERTRALINE HYDROCHLORIDE
  14. XANAX [Concomitant]
     Active Substance: ALPRAZOLAM
  15. BUMEX [Concomitant]
     Active Substance: BUMETANIDE
  16. AMIDARONE [Concomitant]
     Active Substance: AMIODARONE

REACTIONS (1)
  - Constipation [Unknown]

NARRATIVE: CASE EVENT DATE: 20170306
